FAERS Safety Report 8471768-2 (Version None)
Quarter: 2012Q2

REPORT INFORMATION
  Report Type: 
  Country: None (occurrence: None)
  Receive Date: 20120627
  Receipt Date: 20120613
  Transmission Date: 20120825
  Serious: Yes (Other)
  Sender: FDA-Public Use
  Company Number: AU-FRI-1000031593

PATIENT
  Age: 77 Year
  Sex: Female

DRUGS (7)
  1. CITALOPRAM HYDROBROMIDE [Suspect]
     Dosage: 20 MG
  2. DOCUSATE W SENNOSIDES [Concomitant]
  3. ESOMEPRAZOLE [Concomitant]
     Dosage: 40 MG
  4. DIAZEPAM [Concomitant]
     Indication: RESTLESS LEGS SYNDROME
  5. TEMAZEPAM [Concomitant]
     Dosage: 10 MG
  6. OXYCODONE HCL [Suspect]
     Dosage: SLOW RELEASE:50 MG/D,IMMEDIATE REL.5MG/D WHEN REQUIRED
  7. ESOMEPRAZOLE [Concomitant]
     Dosage: 80 MG

REACTIONS (2)
  - DRUG INTERACTION [None]
  - SEROTONIN SYNDROME [None]
